FAERS Safety Report 14654588 (Version 1)
Quarter: 2018Q1

REPORT INFORMATION
  Report Type: Spontaneous
  Country: BE (occurrence: BE)
  Receive Date: 20180319
  Receipt Date: 20180319
  Transmission Date: 20180509
  Serious: Yes (Other)
  Sender: FDA-Public Use
  Company Number: BE-PFIZER INC-2018106656

PATIENT
  Age: 43 Year
  Sex: Male

DRUGS (7)
  1. ERBITUX [Suspect]
     Active Substance: CETUXIMAB
     Indication: MUCOEPIDERMOID CARCINOMA
     Dosage: LOADING DOSE 400 MG/M2
  2. DOCETAXEL. [Suspect]
     Active Substance: DOCETAXEL
     Indication: MUCOEPIDERMOID CARCINOMA
     Dosage: 75  MG/M2  CYCLIC
     Route: 065
  3. FLUOROURACIL. [Suspect]
     Active Substance: FLUOROURACIL
     Indication: MUCOEPIDERMOID CARCINOMA
     Dosage: 750 MG/M2, CYCLIC
     Route: 065
  4. DEXAMETHASONE. [Concomitant]
     Active Substance: DEXAMETHASONE
     Indication: PREMEDICATION
     Dosage: 16 MG 1XDAY
     Route: 065
  5. CISPLATIN. [Suspect]
     Active Substance: CISPLATIN
     Indication: MUCOEPIDERMOID CARCINOMA
     Dosage: 75 MG/M2 CYCLIC
     Route: 065
  6. ERBITUX [Suspect]
     Active Substance: CETUXIMAB
     Dosage: 150 MG/M2 CYCLIC
     Route: 065
  7. CIPROFLOXACIN. [Concomitant]
     Active Substance: CIPROFLOXACIN
     Dosage: 500 MG EVERY 12 HOURS

REACTIONS (8)
  - Alopecia [Unknown]
  - Telangiectasia [Unknown]
  - Neutropenia [Unknown]
  - Dry mouth [Unknown]
  - Skin atrophy [Unknown]
  - Hypotension [Unknown]
  - Rash [Unknown]
  - Anaemia [Unknown]
